FAERS Safety Report 23038938 (Version 2)
Quarter: 2023Q4

REPORT INFORMATION
  Report Type: Spontaneous
  Country: FR (occurrence: FR)
  Receive Date: 20231006
  Receipt Date: 20231026
  Transmission Date: 20240109
  Serious: Yes (Hospitalization, Other)
  Sender: FDA-Public Use
  Company Number: None

PATIENT
  Age: 65 Year
  Sex: Male
  Weight: 67 kg

DRUGS (7)
  1. CARBAMAZEPINE [Suspect]
     Active Substance: CARBAMAZEPINE
     Indication: Neuralgia
     Dosage: 100 MILLIGRAM, QD
     Route: 048
     Dates: start: 202304, end: 20230918
  2. LANSOPRAZOLE [Suspect]
     Active Substance: LANSOPRAZOLE
     Indication: Product used for unknown indication
     Dosage: 30 MILLIGRAM, QD
     Route: 048
     Dates: end: 20230919
  3. REMICADE [Suspect]
     Active Substance: INFLIXIMAB
     Indication: Autoimmune colitis
     Dosage: 335 MILLIGRAM
     Route: 042
     Dates: start: 20230821, end: 20230821
  4. FLUOXETINE [Suspect]
     Active Substance: FLUOXETINE HYDROCHLORIDE
     Indication: Product used for unknown indication
     Dosage: 20 MILLIGRAM, QD
     Route: 048
     Dates: start: 202308, end: 20230918
  5. LORAZEPAM [Suspect]
     Active Substance: LORAZEPAM
     Indication: Mixed anxiety and depressive disorder
     Dosage: 1 MILLIGRAM, QD
     Route: 048
     Dates: start: 202304, end: 20230918
  6. KEYTRUDA [Suspect]
     Active Substance: PEMBROLIZUMAB
     Indication: Squamous cell carcinoma
     Dosage: 200 MILLIGRAM
     Route: 042
     Dates: start: 20230414, end: 20230606
  7. CLOMIPRAMINE [Suspect]
     Active Substance: CLOMIPRAMINE
     Indication: Mixed anxiety and depressive disorder
     Dosage: 112.5 MILLIGRAM, QD
     Route: 048
     Dates: start: 202308, end: 20230919

REACTIONS (2)
  - Hepatitis [Recovering/Resolving]
  - Off label use [Unknown]

NARRATIVE: CASE EVENT DATE: 20230911
